FAERS Safety Report 18270156 (Version 3)
Quarter: 2020Q4

REPORT INFORMATION
  Report Type: Spontaneous
  Country: SE (occurrence: SE)
  Receive Date: 20200916
  Receipt Date: 20201108
  Transmission Date: 20210113
  Serious: Yes (Death)
  Sender: FDA-Public Use
  Company Number: SE-ROCHE-2678280

PATIENT
  Sex: Female
  Weight: 70 kg

DRUGS (3)
  1. MABTHERA [Suspect]
     Active Substance: RITUXIMAB
     Indication: MULTIPLE SCLEROSIS
     Route: 042
     Dates: start: 20130527, end: 20190923
  2. TOVIAZ [Concomitant]
     Active Substance: FESOTERODINE FUMARATE
     Route: 048
  3. BAKLOFEN [Concomitant]
     Active Substance: BACLOFEN
     Dosage: FREQUENCY: 2+3+3
     Route: 048

REACTIONS (3)
  - COVID-19 [Fatal]
  - Off label use [Unknown]
  - Intentional product use issue [Unknown]

NARRATIVE: CASE EVENT DATE: 20200503
